FAERS Safety Report 17061687 (Version 1)
Quarter: 2019Q4

REPORT INFORMATION
  Report Type: Spontaneous
  Country: US (occurrence: US)
  Receive Date: 20191121
  Receipt Date: 20191121
  Transmission Date: 20200122
  Serious: No
  Sender: FDA-Public Use
  Company Number: US-TEVA-2019-US-1138978

PATIENT
  Sex: Female

DRUGS (2)
  1. PERMETHRIN 5% CREAM [Suspect]
     Active Substance: PERMETHRIN
     Indication: ACARODERMATITIS
     Route: 061
     Dates: start: 20191030
  2. PERMETHRIN 5% CREAM [Suspect]
     Active Substance: PERMETHRIN
     Route: 061

REACTIONS (2)
  - Application site swelling [Not Recovered/Not Resolved]
  - Application site pruritus [Not Recovered/Not Resolved]

NARRATIVE: CASE EVENT DATE: 20191030
